FAERS Safety Report 13576396 (Version 1)
Quarter: 2017Q2

REPORT INFORMATION
  Report Type: Spontaneous
  Country: DK (occurrence: DK)
  Receive Date: 20170524
  Receipt Date: 20170524
  Transmission Date: 20170830
  Serious: Yes (Life-Threatening, Hospitalization)
  Sender: FDA-Public Use
  Company Number: DK-TEVA-769430ACC

PATIENT
  Age: 55 Year
  Sex: Male

DRUGS (9)
  1. KLOPOXID ^TAKEDA^ [Suspect]
     Active Substance: CHLORDIAZEPOXIDE
     Indication: DELIRIUM TREMENS
     Dosage: ACCUMULATED DOSE DOSE ABOUT 500 MG.
     Route: 048
     Dates: start: 20170328
  2. APOVIT B-COMBIN ST?RK [Concomitant]
     Indication: VITAMIN SUPPLEMENTATION
     Dosage: 1 DOSAGE FORMS DAILY;
     Route: 048
  3. NIZORAL [Concomitant]
     Active Substance: KETOCONAZOLE
     Dosage: STYRKE: 2 %.
     Route: 003
  4. STESOLID [Suspect]
     Active Substance: DIAZEPAM
     Indication: DELIRIUM TREMENS
     Dosage: DOSIS: 10 MG IV SOM ENGANGSDOSIS.
     Route: 042
     Dates: start: 20170328, end: 20170328
  5. TIAMIN ^SAD^ [Concomitant]
     Indication: VITAMIN SUPPLEMENTATION
     Dosage: 300 MILLIGRAM DAILY;
     Route: 048
  6. VENLAFAXIN [Concomitant]
     Active Substance: VENLAFAXINE HYDROCHLORIDE
     Route: 048
  7. GAVISCON [Concomitant]
     Active Substance: ALUMINUM HYDROXIDE\MAGNESIUM CARBONATE
     Route: 048
  8. PANTOPRAZOLE [Concomitant]
     Active Substance: PANTOPRAZOLE
  9. PINEX [Concomitant]
     Active Substance: ACETAMINOPHEN

REACTIONS (1)
  - Oxygen saturation decreased [Recovered/Resolved]

NARRATIVE: CASE EVENT DATE: 20170328
